FAERS Safety Report 9936077 (Version 2)
Quarter: 2014Q1

REPORT INFORMATION
  Report Type: Spontaneous
  Country: US (occurrence: US)
  Receive Date: 20140228
  Receipt Date: 20140228
  Transmission Date: 20141002
  Serious: No
  Sender: FDA-Public Use
  Company Number: US-AMGEN-USASP2013067893

PATIENT
  Age: 57 Year
  Sex: Female
  Weight: 67.57 kg

DRUGS (5)
  1. ENBREL [Suspect]
     Indication: PRODUCT USED FOR UNKNOWN INDICATION
     Dosage: 50 MG, QWK
     Route: 058
  2. CELEBREX [Concomitant]
     Dosage: 50 MG, UNK
  3. QUINAPRIL [Concomitant]
     Dosage: 10 MG, UNK
  4. HYDROCHLOROTH [Concomitant]
     Dosage: 12.5 MG, UNK
  5. REQUIP [Concomitant]
     Dosage: 0.5 MG, UNK

REACTIONS (3)
  - Bone disorder [Unknown]
  - Myalgia [Unknown]
  - Bone pain [Unknown]
